FAERS Safety Report 4586839-0 (Version None)
Quarter: 2005Q1

REPORT INFORMATION
  Report Type: 
  Country: None (occurrence: None)
  Receive Date: 20050217
  Receipt Date: 20050217
  Transmission Date: 20050727
  Serious: Yes (Hospitalization, Disabling, Congenital Anomaly)
  Sender: FDA-Public Use
  Company Number: None

PATIENT
  Age: 54 Year
  Sex: Male
  Weight: 86.1834 kg

DRUGS (2)
  1. CELEBREX [Suspect]
     Indication: ATRIOVENTRICULAR BLOCK
     Dosage: 200 MG   TWICE PER DAY   ORAL
     Route: 048
  2. CELEBREX [Suspect]
     Indication: MYOCARDIAL INFARCTION
     Dosage: 200 MG   TWICE PER DAY   ORAL
     Route: 048

REACTIONS (1)
  - MYOCARDIAL INFARCTION [None]
